FAERS Safety Report 17774082 (Version 1)
Quarter: 2020Q2

REPORT INFORMATION
  Report Type: Spontaneous
  Country: US (occurrence: US)
  Receive Date: 20200513
  Receipt Date: 20200513
  Transmission Date: 20200714
  Serious: No
  Sender: FDA-Public Use
  Company Number: US-JNJFOC-20200413755

PATIENT

DRUGS (1)
  1. TYLENOL [Suspect]
     Active Substance: ACETAMINOPHEN
     Indication: PAIN
     Dosage: TOOK FOR 30 DAYS FOR PAIN. ONLY 1 TO 2 DAILY.
     Route: 065

REACTIONS (2)
  - Hepatic enzyme increased [Unknown]
  - Incorrect dose administered [Unknown]
